FAERS Safety Report 7128566-1 (Version None)
Quarter: 2010Q4

REPORT INFORMATION
  Report Type: 
  Country: None (occurrence: None)
  Receive Date: 20101130
  Receipt Date: 20101119
  Transmission Date: 20110411
  Serious: Yes (Other)
  Sender: FDA-Public Use
  Company Number: US-JNJFOC-20100301608

PATIENT
  Sex: Male

DRUGS (2)
  1. LEVAQUIN [Suspect]
     Indication: POST PROCEDURAL INFECTION
     Dosage: 14 DAYS
     Route: 048
  2. PREDNISONE [Suspect]
     Indication: CARPAL TUNNEL SYNDROME
     Route: 048

REACTIONS (1)
  - TENDONITIS [None]
